FAERS Safety Report 22382056 (Version 1)
Quarter: 2023Q2

REPORT INFORMATION
  Report Type: Spontaneous
  Country: US (occurrence: US)
  Receive Date: 20230530
  Receipt Date: 20230530
  Transmission Date: 20230721
  Serious: No
  Sender: FDA-Public Use
  Company Number: US-PERRIGO-23US000254

PATIENT
  Age: 34 Year
  Sex: Male
  Weight: 78.005 kg

DRUGS (2)
  1. MINOXIDIL [Suspect]
     Active Substance: MINOXIDIL
     Indication: Androgenetic alopecia
     Dosage: 1 CAPFUL, BID
     Route: 061
     Dates: start: 20220905, end: 20221223
  2. MINOXIDIL [Suspect]
     Active Substance: MINOXIDIL
     Dosage: 1 CAPFUL, SINGLE
     Route: 061
     Dates: start: 20221231, end: 20221231

REACTIONS (8)
  - Rash [Recovered/Resolved]
  - Application site rash [Recovered/Resolved]
  - Application site exfoliation [Not Recovered/Not Resolved]
  - Skin exfoliation [Not Recovered/Not Resolved]
  - Pruritus [Not Recovered/Not Resolved]
  - Application site pain [Recovered/Resolved]
  - Application site pruritus [Not Recovered/Not Resolved]
  - Incorrect dose administered [Recovered/Resolved]

NARRATIVE: CASE EVENT DATE: 20220905
